FAERS Safety Report 11590517 (Version 1)
Quarter: 2015Q4

REPORT INFORMATION
  Report Type: Spontaneous
  Country: IT (occurrence: IT)
  Receive Date: 20151002
  Receipt Date: 20151002
  Transmission Date: 20160304
  Serious: Yes (Other)
  Sender: FDA-Public Use
  Company Number: PHHY2015IT117434

PATIENT
  Age: 28 Year
  Sex: Female

DRUGS (1)
  1. METOPROLOL [Suspect]
     Active Substance: METOPROLOL
     Indication: ARRHYTHMIA
     Route: 065

REACTIONS (10)
  - Feeling abnormal [Unknown]
  - Aphasia [Unknown]
  - Chest pain [Unknown]
  - Activities of daily living impaired [Unknown]
  - Anxiety [Unknown]
  - Palpitations [Unknown]
  - Pyrexia [Unknown]
  - Nightmare [Unknown]
  - Headache [Unknown]
  - Language disorder [Unknown]
